FAERS Safety Report 6398487-0 (Version None)
Quarter: 2009Q4

REPORT INFORMATION
  Report Type: 
  Country: None (occurrence: None)
  Receive Date: 20091013
  Receipt Date: 20091005
  Transmission Date: 20100525
  Serious: Yes (Life-Threatening)
  Sender: FDA-Public Use
  Company Number: B0593082A

PATIENT
  Sex: Female

DRUGS (3)
  1. LAMICTAL [Suspect]
     Indication: EPILEPSY
     Dosage: 25MG PER DAY
     Route: 048
     Dates: start: 20090911, end: 20090911
  2. DEPAKENE [Concomitant]
     Indication: EPILEPSY
     Route: 048
  3. MYSTAN [Concomitant]
     Indication: EPILEPSY
     Route: 048

REACTIONS (2)
  - CONVERSION DISORDER [None]
  - CONVULSION [None]
